FAERS Safety Report 5288332-9 (Version None)
Quarter: 2007Q1

REPORT INFORMATION
  Report Type: 
  Country: None (occurrence: None)
  Receive Date: 20070118
  Receipt Date: 20061213
  Transmission Date: 20070707
  Serious: Yes (Other)
  Sender: FDA-Public Use
  Company Number: HQWYE334718DEC06

PATIENT
  Age: 45 Year
  Sex: Male
  Weight: 106.93 kg

DRUGS (3)
  1. ADVIL PM [Suspect]
     Indication: BACK PAIN
     Dosage: 2 CAPLETS AT BEDTIME AS NEEDED; ORAL
     Route: 048
     Dates: start: 20060901
  2. ADVIL PM [Suspect]
     Indication: INSOMNIA
     Dosage: 2 CAPLETS AT BEDTIME AS NEEDED; ORAL
     Route: 048
     Dates: start: 20060901
  3. SYNTHROID [Concomitant]

REACTIONS (1)
  - DRUG INEFFECTIVE [None]
